FAERS Safety Report 9338653 (Version 1)
Quarter: 2013Q2

REPORT INFORMATION
  Report Type: Spontaneous
  Country: US (occurrence: US)
  Receive Date: 20130610
  Receipt Date: 20130610
  Transmission Date: 20140414
  Serious: No
  Sender: FDA-Public Use
  Company Number: US-BRISTOL-MYERS SQUIBB COMPANY-17054461

PATIENT
  Age: 52 Year
  Sex: Male
  Weight: 86.17 kg

DRUGS (16)
  1. SUSTIVA [Suspect]
     Indication: HIV INFECTION
     Route: 048
     Dates: start: 2008
  2. COMBIVIR [Suspect]
     Indication: HIV INFECTION
     Route: 048
     Dates: start: 2008
  3. NIFEDIPINE [Concomitant]
     Indication: HYPERTENSION
     Route: 048
  4. ENALAPRIL [Concomitant]
     Indication: HYPERTENSION
     Route: 048
  5. CARVEDILOL [Concomitant]
     Indication: HYPERTENSION
     Route: 048
  6. MOTRIN [Concomitant]
     Indication: NEUROPATHY PERIPHERAL
     Route: 048
  7. ALLOPURINOL [Concomitant]
     Indication: GOUT
     Route: 048
  8. HYDRALAZINE [Concomitant]
     Indication: HYPERTENSION
     Route: 048
  9. LASIX [Concomitant]
     Indication: GASTRIC DISORDER
     Route: 048
  10. ZOLOFT [Concomitant]
     Indication: DEPRESSION
     Route: 048
  11. FLOMAX [Concomitant]
     Indication: PROSTATOMEGALY
     Route: 048
  12. ALDACTONE [Concomitant]
     Indication: HYPERTENSION
     Route: 048
  13. ALDACTONE [Concomitant]
     Indication: GASTRIC DISORDER
     Route: 048
  14. VITAMIN C [Concomitant]
     Route: 048
  15. HUMALOG [Concomitant]
     Indication: TYPE 2 DIABETES MELLITUS
     Dates: start: 1993
  16. LANTUS [Concomitant]
     Indication: TYPE 2 DIABETES MELLITUS
     Dates: start: 1993

REACTIONS (1)
  - Gastrooesophageal reflux disease [Unknown]
